FAERS Safety Report 5622741-0 (Version None)
Quarter: 2008Q1

REPORT INFORMATION
  Report Type: 
  Country: None (occurrence: None)
  Receive Date: 20080212
  Receipt Date: 20080123
  Transmission Date: 20080703
  Serious: Yes (Life-Threatening, Hospitalization)
  Sender: FDA-Public Use
  Company Number: ES-JNJFOC-20080200827

PATIENT
  Age: 61 Year
  Sex: Female

DRUGS (10)
  1. IBUPROFEN [Suspect]
     Indication: PAIN
     Route: 048
  2. ENALAPRIL MALEATE [Interacting]
     Indication: RENOVASCULAR HYPERTENSION
     Route: 048
  3. METFORMIN HCL [Interacting]
     Indication: DIABETES MELLITUS
     Route: 048
  4. ALDACTONE [Interacting]
     Indication: ASCITES
     Route: 048
  5. TROMALYT [Interacting]
     Indication: CARDIOVASCULAR EVENT PROPHYLAXIS
     Route: 048
  6. OMEPRAZOLE [Concomitant]
     Indication: GASTRITIS PROPHYLAXIS
     Route: 048
  7. PENTOXIFYLLINE [Concomitant]
  8. PAROXETINE HCL [Concomitant]
  9. ALLOPURINOL [Concomitant]
  10. SIMVASTATIN [Concomitant]
     Route: 048

REACTIONS (2)
  - DRUG INTERACTION [None]
  - RENAL FAILURE ACUTE [None]
